FAERS Safety Report 23336151 (Version 1)
Quarter: 2023Q4

REPORT INFORMATION
  Report Type: Spontaneous
  Country: CN (occurrence: None)
  Receive Date: 20231225
  Receipt Date: 20231225
  Transmission Date: 20240110
  Serious: Yes (Other)
  Sender: FDA-Public Use
  Company Number: CN-ROCHE-3478258

PATIENT

DRUGS (3)
  1. COLUMVI [Suspect]
     Active Substance: GLOFITAMAB-GXBM
     Indication: Diffuse large B-cell lymphoma
     Route: 065
  2. MABTHERA [Suspect]
     Active Substance: RITUXIMAB
     Indication: Diffuse large B-cell lymphoma
     Route: 065
  3. POLIVY [Suspect]
     Active Substance: POLATUZUMAB VEDOTIN-PIIQ
     Indication: Diffuse large B-cell lymphoma
     Route: 065

REACTIONS (12)
  - Infection [Unknown]
  - Nephropathy toxic [Unknown]
  - Urosepsis [Unknown]
  - Haemorrhage [Unknown]
  - Cytokine release syndrome [Unknown]
  - Substance-induced psychotic disorder [Unknown]
  - Fatigue [Unknown]
  - Taste disorder [Unknown]
  - Cardiovascular disorder [Unknown]
  - Infusion related reaction [Unknown]
  - Bronchitis [Unknown]
  - Deep vein thrombosis [Unknown]
